FAERS Safety Report 9575709 (Version 1)
Quarter: 2013Q4

REPORT INFORMATION
  Report Type: Spontaneous
  Country: US (occurrence: US)
  Receive Date: 20131001
  Receipt Date: 20131001
  Transmission Date: 20140711
  Serious: No
  Sender: FDA-Public Use
  Company Number: US-AMGEN-USASP2013000015

PATIENT
  Age: 54 Year
  Sex: Female

DRUGS (8)
  1. ENBREL [Suspect]
     Indication: RHEUMATOID ARTHRITIS
     Dosage: 25 MG, 2 TIMES/WK
     Route: 058
  2. METHOTREXATE [Concomitant]
     Dosage: 2.5 MG, UNK
     Route: 048
  3. ESTROGEN [Concomitant]
     Dosage: UNK
     Route: 048
  4. LISINOPRIL [Concomitant]
     Dosage: 2.5 MG, UNK
     Route: 048
  5. MELOXICAM [Concomitant]
     Dosage: 7.5 MG, UNK
     Route: 048
  6. LEXAPRO [Concomitant]
     Dosage: 5 MG, UNK
     Route: 048
  7. FOLIC ACID [Concomitant]
     Dosage: 1 MG, UNK
     Route: 048
  8. SIMVASTATIN [Concomitant]
     Dosage: 10 MG, UNK
     Route: 048

REACTIONS (1)
  - Influenza [Unknown]
